FAERS Safety Report 6983903-3 (Version None)
Quarter: 2010Q3

REPORT INFORMATION
  Report Type: 
  Country: None (occurrence: None)
  Receive Date: 20100914
  Receipt Date: 20090424
  Transmission Date: 20110219
  Serious: Yes (Other)
  Sender: FDA-Public Use
  Company Number: US-WYE-H09123009

PATIENT
  Age: 56 Year
  Sex: Female
  Weight: 86.26 kg

DRUGS (5)
  1. ADVIL LIQUI-GELS [Suspect]
     Indication: TENDONITIS
     Route: 048
     Dates: start: 20090423, end: 20090423
  2. ADVIL LIQUI-GELS [Suspect]
     Route: 048
     Dates: start: 20090424
  3. NIACIN [Concomitant]
     Indication: POOR PERIPHERAL CIRCULATION
     Dosage: UNKNOWN
     Route: 048
  4. MAGNESIUM [Concomitant]
     Dosage: UNKNOWN
     Route: 048
  5. METFORMIN HCL [Concomitant]
     Indication: DIABETES MELLITUS
     Dosage: UNKNOWN
     Route: 048

REACTIONS (1)
  - BLOOD PRESSURE INCREASED [None]
